FAERS Safety Report 5775199-5 (Version None)
Quarter: 2008Q2

REPORT INFORMATION
  Report Type: 
  Country: None (occurrence: None)
  Receive Date: 20080617
  Receipt Date: 20080611
  Transmission Date: 20081010
  Serious: Yes (Hospitalization)
  Sender: FDA-Public Use
  Company Number: A0733259A

PATIENT
  Sex: Male

DRUGS (1)
  1. VALTREX [Suspect]
     Indication: DRUG USE FOR UNKNOWN INDICATION
     Dosage: 3TAB PER DAY
     Route: 048

REACTIONS (4)
  - BLOOD URINE PRESENT [None]
  - CHROMATURIA [None]
  - URINARY TRACT INFECTION [None]
  - URINE ODOUR ABNORMAL [None]
